FAERS Safety Report 7803607-4 (Version None)
Quarter: 2011Q4

REPORT INFORMATION
  Report Type: 
  Country: None (occurrence: None)
  Receive Date: 20111009
  Receipt Date: 20111004
  Transmission Date: 20120403
  Serious: Yes (Hospitalization)
  Sender: FDA-Public Use
  Company Number: US-BRISTOL-MYERS SQUIBB COMPANY-16129769

PATIENT
  Age: 69 Year
  Sex: Female
  Weight: 130 kg

DRUGS (1)
  1. SPRYCEL [Suspect]
     Indication: ADENOID CYSTIC CARCINOMA
     Dosage: LAST DOSE: 02AUG2011, DISCONTINUED ON 03AUG2011.
     Route: 048
     Dates: start: 20110714, end: 20110802

REACTIONS (4)
  - ATELECTASIS [None]
  - DYSPNOEA [None]
  - FATIGUE [None]
  - PLEURAL EFFUSION [None]
